FAERS Safety Report 8891364 (Version 1)
Quarter: 2012Q4

REPORT INFORMATION
  Report Type: Spontaneous
  Country: US (occurrence: None)
  Receive Date: 20121105
  Receipt Date: 20121105
  Transmission Date: 20130627
  Serious: Yes (Death)
  Sender: FDA-Public Use
  Company Number: None

PATIENT
  Age: 87 Year
  Sex: Female
  Weight: 79.1 kg

DRUGS (2)
  1. DABIGATRAN [Suspect]
     Indication: ATRIAL FIBRILLATION
     Route: 048
  2. ADVIL [Suspect]
     Indication: PAIN

REACTIONS (6)
  - Gastrointestinal perforation [None]
  - Haemoglobin decreased [None]
  - International normalised ratio increased [None]
  - Small intestinal haemorrhage [None]
  - Computerised tomogram abdomen abnormal [None]
  - Gastrointestinal disorder [None]
